FAERS Safety Report 5798152-4 (Version None)
Quarter: 2008Q3

REPORT INFORMATION
  Report Type: 
  Country: None (occurrence: None)
  Receive Date: 20080702
  Receipt Date: 20080625
  Transmission Date: 20090109
  Serious: Yes (Hospitalization)
  Sender: FDA-Public Use
  Company Number: FR-AVENTIS-200813166EU

PATIENT
  Age: 61 Year
  Sex: Male

DRUGS (9)
  1. ENOXAPARIN SODIUM [Suspect]
     Route: 058
  2. COUMADIN [Suspect]
     Route: 048
     Dates: start: 20080126, end: 20080318
  3. COUMADIN [Suspect]
     Route: 048
     Dates: start: 20080319
  4. LASIX [Concomitant]
     Route: 048
     Dates: start: 20080126
  5. TRIATEC                            /00885601/ [Concomitant]
     Indication: HYPERTENSION
     Route: 048
     Dates: start: 20080202
  6. KARDEGIC                           /00002703/ [Concomitant]
     Route: 048
     Dates: start: 20080218
  7. XATRAL                             /00975301/ [Concomitant]
     Route: 048
     Dates: start: 20070101
  8. NEXIUM [Concomitant]
     Route: 048
     Dates: start: 20080125
  9. STILNOX                            /00914901/ [Concomitant]
     Route: 048
     Dates: start: 20080111

REACTIONS (1)
  - INTERNATIONAL NORMALISED RATIO FLUCTUATION [None]
